FAERS Safety Report 7300611 (Version 3)
Quarter: 2013Q4

REPORT INFORMATION
  Report Type: Spontaneous
  Country: US (occurrence: US)
  Receive Date: 20100301
  Receipt Date: 20131111
  Transmission Date: 20140711
  Serious: Yes (Hospitalization)
  Sender: FDA-Public Use
  Company Number: US-JNJFOC-20100208128

PATIENT
  Age: 47 Year
  Sex: Female
  Weight: 54.43 kg

DRUGS (10)
  1. SIMPONI [Suspect]
     Indication: RHEUMATOID ARTHRITIS
     Route: 058
     Dates: start: 20091224
  2. CALCIUM CITRATE [Concomitant]
     Indication: VITAMIN SUPPLEMENTATION
  3. VICODIN [Concomitant]
     Indication: PAIN
  4. FOLIC ACID [Concomitant]
     Indication: RHEUMATOID ARTHRITIS
  5. MTX [Concomitant]
     Indication: RHEUMATOID ARTHRITIS
  6. IBUPROFEN [Concomitant]
     Indication: RHEUMATOID ARTHRITIS
  7. ARAVA [Concomitant]
  8. FLEXERIL [Concomitant]
     Indication: MUSCLE SPASMS
  9. XANAX [Concomitant]
     Indication: SLEEP DISORDER
  10. PREDNISONE [Concomitant]

REACTIONS (4)
  - Fall [Not Recovered/Not Resolved]
  - Lower limb fracture [Not Recovered/Not Resolved]
  - Drug dose omission [Not Recovered/Not Resolved]
  - Device malfunction [Not Recovered/Not Resolved]
